FAERS Safety Report 6610013-7 (Version None)
Quarter: 2010Q1

REPORT INFORMATION
  Report Type: 
  Country: None (occurrence: None)
  Receive Date: 20100302
  Receipt Date: 20100218
  Transmission Date: 20100710
  Serious: Yes (Hospitalization)
  Sender: FDA-Public Use
  Company Number: ES-ROCHE-686485

PATIENT
  Sex: Male

DRUGS (5)
  1. CAPECITABINE [Suspect]
     Indication: RENAL CELL CARCINOMA
     Route: 048
     Dates: start: 20091008
  2. SUTENT [Suspect]
     Indication: RENAL CELL CARCINOMA
     Dosage: FORM: CAPSULE HARD
     Route: 048
     Dates: start: 20091008
  3. GEMCITABINE HCL [Suspect]
     Indication: RENAL CELL CARCINOMA
     Route: 042
     Dates: start: 20091008
  4. OMNIC [Concomitant]
  5. AMLODIPINE [Concomitant]

REACTIONS (1)
  - DIABETES MELLITUS [None]
